FAERS Safety Report 18340374 (Version 1)
Quarter: 2020Q4

REPORT INFORMATION
  Report Type: Other
  Country: CA (occurrence: CA)
  Receive Date: 20201002
  Receipt Date: 20201002
  Transmission Date: 20210113
  Serious: Yes (Other)
  Sender: FDA-Public Use
  Company Number: CA-DUCHESNAY-2020CA000096

PATIENT
  Sex: Female

DRUGS (1)
  1. DICLECTIN [Suspect]
     Active Substance: DOXYLAMINE SUCCINATE\PYRIDOXINE HYDROCHLORIDE
     Indication: MORNING SICKNESS
     Dosage: 1 DOSAGE FORM, PRN
     Route: 048

REACTIONS (4)
  - Dyspnoea [Unknown]
  - Dysstasia [Unknown]
  - Abdominal pain upper [Unknown]
  - Pain [Unknown]
